FAERS Safety Report 21678590 (Version 1)
Quarter: 2022Q4

REPORT INFORMATION
  Report Type: Spontaneous
  Country: CA (occurrence: CA)
  Receive Date: 20221203
  Receipt Date: 20221203
  Transmission Date: 20230112
  Serious: Yes (Other)
  Sender: FDA-Public Use
  Company Number: None

PATIENT
  Sex: Female

DRUGS (4)
  1. VICTOZA [Suspect]
     Active Substance: LIRAGLUTIDE
     Indication: Steroid diabetes
     Dosage: 10 IU; 3 EVERY 1 DAYS
     Route: 058
  2. VICTOZA [Suspect]
     Active Substance: LIRAGLUTIDE
     Indication: Product use in unapproved indication
  3. INSULIN GLARGINE [Suspect]
     Active Substance: INSULIN GLARGINE
     Indication: Product use in unapproved indication
  4. INSULIN GLARGINE [Suspect]
     Active Substance: INSULIN GLARGINE
     Indication: Steroid diabetes
     Dosage: 6 IU, QD
     Route: 058

REACTIONS (3)
  - Malignant neoplasm progression [Unknown]
  - Hypoglycaemia [Unknown]
  - Product use in unapproved indication [Unknown]
